FAERS Safety Report 24985768 (Version 1)
Quarter: 2025Q1

REPORT INFORMATION
  Report Type: Spontaneous
  Country: CN (occurrence: CN)
  Receive Date: 20250219
  Receipt Date: 20250219
  Transmission Date: 20250409
  Serious: Yes (Hospitalization, Other)
  Sender: GLAND PHARMA LTD
  Company Number: CN-GLANDPHARMA-CN-2025GLNLIT00285

PATIENT
  Age: 95 Year
  Sex: Female

DRUGS (23)
  1. MEROPENEM [Suspect]
     Active Substance: MEROPENEM
     Indication: Infection
     Route: 065
  2. MOXIFLOXACIN [Suspect]
     Active Substance: MOXIFLOXACIN
     Indication: Pneumonia
     Route: 065
  3. MOXIFLOXACIN [Suspect]
     Active Substance: MOXIFLOXACIN
     Indication: Infection
  4. LEVOFLOXACIN [Suspect]
     Active Substance: LEVOFLOXACIN
     Indication: Infection
     Route: 065
  5. CEFTRIAXONE [Suspect]
     Active Substance: CEFTRIAXONE
     Indication: Bronchiolitis
     Route: 065
  6. CEFTRIAXONE [Suspect]
     Active Substance: CEFTRIAXONE
     Indication: Infection
  7. TEICOPLANIN [Suspect]
     Active Substance: TEICOPLANIN
     Indication: Infection
     Route: 065
  8. TIGECYCLINE [Suspect]
     Active Substance: TIGECYCLINE
     Indication: Infection
     Route: 065
  9. POLYMYXIN B [Suspect]
     Active Substance: POLYMYXIN B
     Indication: Infection
     Route: 065
  10. CEFOPERAZONE SODIUM\SULBACTAM [Suspect]
     Active Substance: CEFOPERAZONE SODIUM\SULBACTAM
     Indication: Infection
     Route: 065
  11. PIPERACILLIN SODIUM\TAZOBACTAM SODIUM [Suspect]
     Active Substance: PIPERACILLIN SODIUM\TAZOBACTAM SODIUM
     Indication: Infection
     Route: 065
  12. AMIKACIN [Suspect]
     Active Substance: AMIKACIN
     Indication: Infection
     Route: 065
  13. ISEPAMICIN [Suspect]
     Active Substance: ISEPAMICIN
     Indication: Infection
     Route: 065
  14. COLISTIN [Suspect]
     Active Substance: COLISTIN
     Indication: Infection
     Route: 065
  15. NIFEDIPINE [Concomitant]
     Active Substance: NIFEDIPINE
     Indication: Hypertension
     Route: 065
  16. METFORMIN [Concomitant]
     Active Substance: METFORMIN HYDROCHLORIDE
     Indication: Diabetes mellitus
     Route: 065
  17. METHYLPREDNISOLONE [Concomitant]
     Active Substance: METHYLPREDNISOLONE
     Indication: Inflammation
     Route: 065
  18. RO-0622 [Concomitant]
     Active Substance: RO-0622
     Route: 065
  19. THYMALFASIN [Concomitant]
     Active Substance: THYMALFASIN
     Route: 065
  20. PAXLOVID [Concomitant]
     Active Substance: NIRMATRELVIR\RITONAVIR
     Indication: Antiviral treatment
     Route: 065
  21. MICAFUNGIN [Concomitant]
     Active Substance: MICAFUNGIN SODIUM
     Indication: Infection
     Route: 065
  22. VORICONAZOLE [Concomitant]
     Active Substance: VORICONAZOLE
     Indication: Infection
     Route: 065
  23. IMMUNE GLOBULIN NOS [Concomitant]
     Active Substance: IMMUNE GLOBULIN NOS
     Indication: Infection
     Route: 065

REACTIONS (3)
  - Dysbiosis [Recovering/Resolving]
  - Pneumonia klebsiella [Recovering/Resolving]
  - Drug ineffective [Unknown]
